FAERS Safety Report 19705311 (Version 1)
Quarter: 2021Q3

REPORT INFORMATION
  Report Type: Spontaneous
  Country: US (occurrence: US)
  Receive Date: 20210814
  Receipt Date: 20210814
  Transmission Date: 20211014
  Serious: Yes (Hospitalization)
  Sender: FDA-Public Use
  Company Number: None

PATIENT
  Sex: Female
  Weight: 75.8 kg

DRUGS (1)
  1. FEMARA [Suspect]
     Active Substance: LETROZOLE

REACTIONS (8)
  - Pleural effusion [None]
  - Constipation [None]
  - Malaise [None]
  - Fatigue [None]
  - Disease progression [None]
  - Anaemia [None]
  - Asthenia [None]
  - Ascites [None]

NARRATIVE: CASE EVENT DATE: 20210627
